FAERS Safety Report 8759717 (Version 1)
Quarter: 2012Q4

REPORT INFORMATION
  Report Type: 
  Country: US (occurrence: US)
  Receive Date: 20120829
  Receipt Date: 20120829
  Transmission Date: 20130627
  Serious: Yes (Hospitalization)
  Sender: FDA-Public Use
  Company Number: US-ASTRAZENECA-2012SE60600

PATIENT
  Sex: Female
  Weight: 54.4 kg

DRUGS (6)
  1. SEROQUEL [Suspect]
     Indication: AGITATION
     Route: 048
     Dates: start: 20120810, end: 20120810
  2. SEROQUEL [Suspect]
     Indication: AGITATION
     Route: 048
  3. LEXAPRO [Concomitant]
  4. NAMENTA [Concomitant]
     Indication: DEMENTIA ALZHEIMER^S TYPE
  5. BLOOD PRESSURE MEDICATION [Concomitant]
     Indication: HYPERTENSION
  6. ARICEPT [Concomitant]

REACTIONS (3)
  - Accidental overdose [Recovered/Resolved]
  - Heart rate decreased [Unknown]
  - Off label use [Unknown]
